FAERS Safety Report 8376373-4 (Version None)
Quarter: 2012Q2

REPORT INFORMATION
  Report Type: 
  Country: None (occurrence: None)
  Receive Date: 20120522
  Receipt Date: 20120514
  Transmission Date: 20120825
  Serious: Yes (Hospitalization)
  Sender: FDA-Public Use
  Company Number: US-B.I. PHARMACEUTICALS,INC./RIDGEFIELD-2012-BP-10736BP

PATIENT
  Sex: Female

DRUGS (3)
  1. PRADAXA [Suspect]
  2. ACTOS [Suspect]
     Indication: TYPE 2 DIABETES MELLITUS
     Dosage: 15 MG
  3. BLIND (SAXAGLIPTIN) [Suspect]
     Indication: TYPE 2 DIABETES MELLITUS

REACTIONS (1)
  - TOXICITY TO VARIOUS AGENTS [None]
